FAERS Safety Report 15896033 (Version 1)
Quarter: 2019Q1

REPORT INFORMATION
  Report Type: Spontaneous
  Country: US (occurrence: US)
  Receive Date: 20190131
  Receipt Date: 20190131
  Transmission Date: 20190417
  Serious: Yes (Hospitalization, Other)
  Sender: FDA-Public Use
  Company Number: US-AMAG PHARMACEUTICALS, INC.-AMAG201805403

PATIENT
  Age: 84 Year
  Sex: Male

DRUGS (1)
  1. FERAHEME [Suspect]
     Active Substance: FERUMOXYTOL NON-STOICHIOMETRIC MAGNETITE
     Indication: PRODUCT USED FOR UNKNOWN INDICATION
     Dosage: UNK
     Route: 041
     Dates: start: 20180606, end: 20180606

REACTIONS (8)
  - Hyperhidrosis [Unknown]
  - Hypotension [Unknown]
  - Dizziness [Unknown]
  - Hypersensitivity [Unknown]
  - Dyspnoea [Unknown]
  - Nausea [Unknown]
  - Acute respiratory distress syndrome [Unknown]
  - Vomiting [Unknown]

NARRATIVE: CASE EVENT DATE: 20180606
